FAERS Safety Report 8144780-0 (Version None)
Quarter: 2012Q1

REPORT INFORMATION
  Report Type: 
  Country: None (occurrence: None)
  Receive Date: 20120217
  Receipt Date: 20120208
  Transmission Date: 20120608
  Serious: Yes (Death, Hospitalization)
  Sender: FDA-Public Use
  Company Number: US-ACTELION-A-US2011-58254

PATIENT

DRUGS (5)
  1. REVATIO [Concomitant]
  2. DIGOXIN [Concomitant]
  3. COUMADIN [Concomitant]
  4. EXJADE [Concomitant]
  5. TRACLEER [Suspect]
     Indication: PULMONARY ARTERIAL HYPERTENSION
     Dosage: UNK MG, UNK
     Route: 048
     Dates: start: 20060410

REACTIONS (6)
  - NAUSEA [None]
  - VOMITING [None]
  - DIARRHOEA [None]
  - PULMONARY ARTERIAL HYPERTENSION [None]
  - INFECTION [None]
  - RIGHT VENTRICULAR FAILURE [None]
